FAERS Safety Report 24795070 (Version 1)
Quarter: 2024Q4

REPORT INFORMATION
  Report Type: Spontaneous
  Country: JP (occurrence: JP)
  Receive Date: 20241231
  Receipt Date: 20241231
  Transmission Date: 20250115
  Serious: Yes (Other)
  Sender: ALEXION PHARMACEUTICALS
  Company Number: JP-ASTRAZENECA-240146582_010220_P_1

PATIENT
  Age: 5 Decade

DRUGS (10)
  1. FULVESTRANT [Suspect]
     Active Substance: FULVESTRANT
     Indication: Breast cancer female
     Dosage: DOSE UNKNOWN
  2. FULVESTRANT [Suspect]
     Active Substance: FULVESTRANT
     Dosage: DOSE UNKNOWN
     Route: 030
  3. FULVESTRANT [Suspect]
     Active Substance: FULVESTRANT
     Dosage: DOSE UNKNOWN
  4. FULVESTRANT [Suspect]
     Active Substance: FULVESTRANT
     Dosage: DOSE UNKNOWN
     Route: 030
  5. GOSERELIN [Suspect]
     Active Substance: GOSERELIN
     Indication: Breast cancer female
     Dosage: DOSE UNKNOWN
  6. GOSERELIN [Suspect]
     Active Substance: GOSERELIN
     Dosage: DOSE UNKNOWN
     Route: 058
  7. GOSERELIN [Suspect]
     Active Substance: GOSERELIN
     Dosage: DOSE UNKNOWN
  8. GOSERELIN [Suspect]
     Active Substance: GOSERELIN
     Dosage: DOSE UNKNOWN
     Route: 058
  9. IBRANCE [Concomitant]
     Active Substance: PALBOCICLIB
     Indication: Breast cancer female
     Dosage: DOSE UNKNOWN
     Route: 065
  10. IBRANCE [Concomitant]
     Active Substance: PALBOCICLIB
     Dosage: DOSE UNKNOWN
     Route: 065

REACTIONS (1)
  - Brain neoplasm [Unknown]
